FAERS Safety Report 23632507 (Version 3)
Quarter: 2024Q2

REPORT INFORMATION
  Report Type: Spontaneous
  Country: US (occurrence: US)
  Receive Date: 20240314
  Receipt Date: 20240528
  Transmission Date: 20240716
  Serious: Yes (Other)
  Sender: FDA-Public Use
  Company Number: US-PFIZER INC-202400062518

PATIENT
  Age: 62 Year
  Sex: Male

DRUGS (5)
  1. OXBRYTA [Suspect]
     Active Substance: VOXELOTOR
     Dosage: 1000 MG
  2. OXBRYTA [Suspect]
     Active Substance: VOXELOTOR
     Dosage: 500 MG
  3. OXBRYTA [Suspect]
     Active Substance: VOXELOTOR
     Dosage: 500MG, ONCE DAILY
     Route: 048
  4. OXBRYTA [Suspect]
     Active Substance: VOXELOTOR
     Dosage: 500MG,1 TABLET, BY MOUTH, ONCE DAILY
     Route: 048
  5. OXBRYTA [Suspect]
     Active Substance: VOXELOTOR
     Dosage: 500 / TAKE 1 TABLET, BY MOUTH, ONCE DAILY; DISPENSE QUANTITY #30
     Route: 048

REACTIONS (5)
  - Transfusion [Unknown]
  - Nail discolouration [Unknown]
  - Skin discolouration [Unknown]
  - Dark circles under eyes [Unknown]
  - Off label use [Unknown]

NARRATIVE: CASE EVENT DATE: 20240401
